FAERS Safety Report 17449450 (Version 3)
Quarter: 2021Q2

REPORT INFORMATION
  Report Type: Spontaneous
  Country: US (occurrence: US)
  Receive Date: 20200224
  Receipt Date: 20210402
  Transmission Date: 20210716
  Serious: No
  Sender: FDA-Public Use
  Company Number: US-ALLERGAN-1940970US

PATIENT
  Age: 83 Year
  Sex: Female

DRUGS (2)
  1. INSULIN [Concomitant]
     Active Substance: INSULIN NOS
     Indication: DIABETES MELLITUS
     Dosage: UNK, TID
  2. OXYTROL [Suspect]
     Active Substance: OXYBUTYNIN
     Indication: HYPERTONIC BLADDER
     Dosage: 1 DF, UNKNOWN
     Route: 062
     Dates: start: 20191007, end: 201910

REACTIONS (3)
  - Blood urea nitrogen/creatinine ratio increased [Unknown]
  - Drug ineffective [Unknown]
  - Blood creatinine increased [Unknown]
